FAERS Safety Report 6198163-3 (Version None)
Quarter: 2009Q2

REPORT INFORMATION
  Report Type: 
  Country: None (occurrence: None)
  Receive Date: 20090521
  Receipt Date: 20090508
  Transmission Date: 20091009
  Serious: Yes (Hospitalization, Other)
  Sender: FDA-Public Use
  Company Number: US-ROCHE-633210

PATIENT
  Age: 55 Year
  Sex: Female

DRUGS (6)
  1. ROCEPHIN [Suspect]
     Route: 042
     Dates: start: 20090301
  2. AVELOX [Suspect]
     Dosage: OTHER INDICATION: PNEUMONIA AND BRONCHITIS. ROUTE REPORTED AS ORAL OR INTRAVENOUS
     Route: 048
  3. ZITHROMAX [Suspect]
     Dosage: OTHER INDICATION: PNEUMONIA AND BRONCHITIS
     Route: 042
  4. LEVAQUIN [Suspect]
     Route: 042
     Dates: start: 20090301
  5. GENTAMYCIN SULFATE [Concomitant]
     Dosage: THIRD COURSE
     Route: 042
  6. CARTEOLOL HYDROCHLORIDE [Concomitant]
     Dosage: DRUG NAME REPORTED AS FORTINOL. THIRD COURSE

REACTIONS (5)
  - CHILLS [None]
  - LUNG INJURY [None]
  - OXYGEN SATURATION DECREASED [None]
  - PNEUMONIA [None]
  - PYREXIA [None]
